FAERS Safety Report 16051128 (Version 1)
Quarter: 2019Q2

REPORT INFORMATION
  Report Type: Spontaneous
  Country: US (occurrence: US)
  Receive Date: 20190307
  Receipt Date: 20190307
  Transmission Date: 20190711
  Serious: No
  Sender: FDA-Public Use
  Company Number: None

PATIENT

DRUGS (1)
  1. XTAMPZA [Suspect]
     Active Substance: OXYCODONE

REACTIONS (3)
  - Palpitations [None]
  - Disturbance in attention [None]
  - Malaise [None]
